FAERS Safety Report 17036600 (Version 6)
Quarter: 2020Q3

REPORT INFORMATION
  Report Type: Report from Study
  Country: US (occurrence: US)
  Receive Date: 20191115
  Receipt Date: 20200501
  Transmission Date: 20201104
  Serious: Yes (Hospitalization)
  Sender: FDA-Public Use
  Company Number: US-PFIZER INC-2019489863

PATIENT
  Age: 31 Year
  Sex: Female
  Weight: 66.6 kg

DRUGS (15)
  1. CORTEF [Concomitant]
     Active Substance: HYDROCORTISONE
     Indication: ADRENAL INSUFFICIENCY
     Dosage: 20 MG, DAILY (10 MG,2 IN 1 D)
     Route: 048
     Dates: start: 20180709
  2. ELIQUIS [Concomitant]
     Active Substance: APIXABAN
     Indication: EMBOLISM
     Dosage: 2.5 MG, 2X/DAY (2.5 MG,2 IN 1 D)
     Route: 048
     Dates: start: 201906
  3. MICROGESTIN [Concomitant]
     Active Substance: ETHINYL ESTRADIOL\NORETHINDRONE ACETATE
     Indication: CONTRACEPTION
     Dosage: UNK, 1X/DAY (1?20 MG?MCG)
     Route: 048
     Dates: start: 2018
  4. ZOFRAN [Concomitant]
     Active Substance: ONDANSETRON HYDROCHLORIDE
     Indication: NAUSEA
     Dosage: 8 MG, 3X/DAY (EVERY 8H AS REQUIRED)
     Route: 048
     Dates: start: 201810
  5. PHENERGAN [Concomitant]
     Active Substance: PROMETHAZINE HYDROCHLORIDE
     Indication: NAUSEA
     Dosage: 25 MG, UNK
     Route: 048
     Dates: start: 201808
  6. CB?839 [Suspect]
     Active Substance: TELAGLENASTAT
     Indication: CLEAR CELL RENAL CELL CARCINOMA
     Dosage: 800 MG, 2X/DAY (1600 MG, DAILY)
     Route: 048
     Dates: start: 20190906
  7. DOXYCYCLIN [DOXYCYCLINE] [Concomitant]
     Active Substance: DOXYCYCLINE
     Indication: PYREXIA
     Dosage: 200 MG, 2X/DAY (100 MG,1 IN 12 HR)
     Route: 048
     Dates: start: 20190916, end: 20190925
  8. LEVAQUIN [Concomitant]
     Active Substance: LEVOFLOXACIN
     Indication: PYREXIA
     Dosage: 500 MG, 1X/DAY
     Route: 048
     Dates: start: 20190916, end: 20190925
  9. MARINOL [Concomitant]
     Active Substance: DRONABINOL
     Indication: DECREASED APPETITE
     Dosage: 5 MG, AS NEEDED
     Route: 048
     Dates: start: 201902
  10. DILAUDID [Concomitant]
     Active Substance: HYDROMORPHONE HYDROCHLORIDE
     Indication: FLANK PAIN
     Dosage: 4 MG, 3X/DAY (THREE TIMES DAILY AS REQUIRED)
     Route: 048
     Dates: start: 20190730
  11. TALAZOPARIB. [Suspect]
     Active Substance: TALAZOPARIB
     Indication: CLEAR CELL RENAL CELL CARCINOMA
     Dosage: 1 MG, 1X/DAY
     Route: 048
     Dates: start: 20190906
  12. VALIUM [Concomitant]
     Active Substance: DIAZEPAM
     Indication: ANXIETY
     Dosage: 5 MG, AS NEEDED
     Route: 048
     Dates: start: 20180315
  13. LIDODERM [Concomitant]
     Active Substance: LIDOCAINE
     Indication: FLANK PAIN
     Dosage: 700 MG AS NEEDED
     Route: 062
     Dates: start: 20190505
  14. SYNTHROID [Concomitant]
     Active Substance: LEVOTHYROXINE SODIUM
     Indication: HYPOTHYROIDISM
     Dosage: 75 UG, 1X/DAY
     Route: 048
     Dates: start: 20181206
  15. MS CONTIN [Concomitant]
     Active Substance: MORPHINE SULFATE
     Indication: FLANK PAIN
     Dosage: 30 MG, AS NEEDED (THREE TIMES DAILY AS REQUIRED)
     Route: 048
     Dates: start: 20190619

REACTIONS (2)
  - Nausea [Recovered/Resolved]
  - Vomiting [Recovered/Resolved]

NARRATIVE: CASE EVENT DATE: 20191018
